FAERS Safety Report 9748178 (Version 1)
Quarter: 2013Q4

REPORT INFORMATION
  Report Type: Spontaneous
  Country: US (occurrence: US)
  Receive Date: 20131212
  Receipt Date: 20131212
  Transmission Date: 20140711
  Serious: No
  Sender: FDA-Public Use
  Company Number: US-PFIZER INC-2013354102

PATIENT
  Sex: Male

DRUGS (3)
  1. LYRICA [Suspect]
     Dosage: UNK, 1X/DAY
  2. LYRICA [Suspect]
     Dosage: UNK, 2X/DAY
  3. LYRICA [Suspect]
     Dosage: UNK, 3X/DAY

REACTIONS (2)
  - Fatigue [Unknown]
  - Somnolence [Unknown]
